FAERS Safety Report 15044669 (Version 2)
Quarter: 2018Q4

REPORT INFORMATION
  Report Type: Spontaneous
  Country: US (occurrence: US)
  Receive Date: 20180621
  Receipt Date: 20181102
  Transmission Date: 20190204
  Serious: Yes (Other)
  Sender: FDA-Public Use
  Company Number: US-TEVA-2018-US-908328

PATIENT
  Sex: Male

DRUGS (3)
  1. ZOLPIDEM [Suspect]
     Active Substance: ZOLPIDEM\ZOLPIDEM TARTRATE
     Route: 065
  2. CLONAZEPAM. [Suspect]
     Active Substance: CLONAZEPAM
     Dosage: DOSE: 3 TO 1.5 MG
     Route: 065
  3. TEMAZAPAM [Suspect]
     Active Substance: TEMAZEPAM
     Route: 065

REACTIONS (4)
  - Neurotransmitter level altered [Unknown]
  - Withdrawal syndrome [Unknown]
  - Burning sensation [Unknown]
  - Drug ineffective [Unknown]
